FAERS Safety Report 8875725 (Version 1)
Quarter: 2012Q4

REPORT INFORMATION
  Report Type: Report from Study
  Country: FR (occurrence: FR)
  Receive Date: 20121030
  Receipt Date: 20121030
  Transmission Date: 20130627
  Serious: Yes (Hospitalization)
  Sender: FDA-Public Use
  Company Number: PHHO2012FR015620

PATIENT
  Age: 66 Year
  Sex: Female

DRUGS (2)
  1. NEORAL [Suspect]
     Indication: RENAL TRANSPLANT
     Dosage: 100 mg, QD
     Route: 048
     Dates: start: 20111026
  2. CELLCEPT [Suspect]
     Indication: RENAL TRANSPLANT
     Dosage: 500 mg, QD2SDO
     Route: 048
     Dates: start: 20111026

REACTIONS (2)
  - Hypercalcaemia [Recovering/Resolving]
  - Bronchopneumonia [Recovered/Resolved]
